FAERS Safety Report 7350071-8 (Version None)
Quarter: 2011Q1

REPORT INFORMATION
  Report Type: 
  Country: None (occurrence: None)
  Receive Date: 20110314
  Receipt Date: 20110303
  Transmission Date: 20110831
  Serious: Yes (Life-Threatening, Hospitalization)
  Sender: FDA-Public Use
  Company Number: JP-ELI_LILLY_AND_COMPANY-JP201103001257

PATIENT
  Age: 47 Year
  Sex: Male

DRUGS (1)
  1. ZYPREXA [Suspect]
     Indication: BIPOLAR DISORDER
     Dosage: 10 MG, DAILY (1/D)
     Route: 048

REACTIONS (9)
  - RENAL DISORDER [None]
  - LIVER DISORDER [None]
  - HYPERKALAEMIA [None]
  - PANCREATITIS [None]
  - INCREASED APPETITE [None]
  - WEIGHT INCREASED [None]
  - HYPERLIPIDAEMIA [None]
  - ILEUS [None]
  - DIABETIC KETOACIDOSIS [None]
